FAERS Safety Report 6786068-6 (Version None)
Quarter: 2010Q2

REPORT INFORMATION
  Report Type: 
  Country: None (occurrence: None)
  Receive Date: 20100623
  Receipt Date: 20100610
  Transmission Date: 20101027
  Serious: Yes (Hospitalization)
  Sender: FDA-Public Use
  Company Number: PHHY2010NO38068

PATIENT
  Sex: Female

DRUGS (9)
  1. RITALIN [Suspect]
     Indication: ATTENTION DEFICIT/HYPERACTIVITY DISORDER
     Dosage: 70 MG DAILY
     Dates: start: 20070206
  2. RITALIN [Suspect]
     Dosage: 45-60 MG DAILY
  3. RITALIN [Suspect]
     Dosage: UNK
     Dates: end: 20090430
  4. ALBYL E [Concomitant]
     Dosage: UNK
  5. PROGYNOVA [Concomitant]
  6. IMDUR [Concomitant]
     Dosage: UNK
  7. LANSOPRAZOLE [Concomitant]
  8. PHENERGAN [Concomitant]
  9. TOLVON [Concomitant]
     Dosage: UNK

REACTIONS (21)
  - ABNORMAL SENSATION IN EYE [None]
  - ANGER [None]
  - ASTHENIA [None]
  - CEREBROVASCULAR ACCIDENT [None]
  - CONFUSIONAL STATE [None]
  - DEPRESSION [None]
  - FALL [None]
  - FEELING ABNORMAL [None]
  - FRUSTRATION [None]
  - HALLUCINATION, AUDITORY [None]
  - HEADACHE [None]
  - HYPERACUSIS [None]
  - IMPAIRED WORK ABILITY [None]
  - LACK OF SPONTANEOUS SPEECH [None]
  - MEMORY IMPAIRMENT [None]
  - MENTAL DISORDER [None]
  - PARANOIA [None]
  - PHOTOPHOBIA [None]
  - PSYCHOTIC DISORDER [None]
  - RESTLESSNESS [None]
  - SOCIAL AVOIDANT BEHAVIOUR [None]
